APPROVED DRUG PRODUCT: ISOSORBIDE DINITRATE
Active Ingredient: ISOSORBIDE DINITRATE
Strength: 5MG
Dosage Form/Route: TABLET;ORAL
Application: A086034 | Product #001
Applicant: WATSON LABORATORIES INC
Approved: Jan 6, 1988 | RLD: No | RS: No | Type: DISCN